FAERS Safety Report 22292184 (Version 3)
Quarter: 2023Q2

REPORT INFORMATION
  Report Type: Report from Study
  Country: US (occurrence: US)
  Receive Date: 20230508
  Receipt Date: 20230607
  Transmission Date: 20230721
  Serious: Yes (Hospitalization, Other)
  Sender: FDA-Public Use
  Company Number: US-ABBVIE-4756784

PATIENT
  Age: 60 Year
  Sex: Female

DRUGS (2)
  1. HUMIRA [Suspect]
     Active Substance: ADALIMUMAB
     Indication: Crohn^s disease
     Route: 058
     Dates: start: 20230411
  2. HUMIRA [Suspect]
     Active Substance: ADALIMUMAB
     Route: 058
     Dates: start: 20000414

REACTIONS (7)
  - Nephrolithiasis [Not Recovered/Not Resolved]
  - Ovarian cancer [Not Recovered/Not Resolved]
  - Body temperature abnormal [Unknown]
  - Urinary retention postoperative [Unknown]
  - Procedural pain [Unknown]
  - Dehydration [Unknown]
  - Kidney contusion [Unknown]

NARRATIVE: CASE EVENT DATE: 20230427
